FAERS Safety Report 10098800 (Version 1)
Quarter: 2014Q2

REPORT INFORMATION
  Report Type: Spontaneous
  Country: US (occurrence: None)
  Receive Date: 20140422
  Receipt Date: 20140422
  Transmission Date: 20141212
  Serious: Yes (Disabling)
  Sender: FDA-Public Use
  Company Number: None

PATIENT
  Age: 58 Year
  Sex: Female
  Weight: 88.45 kg

DRUGS (10)
  1. ABILIFY [Suspect]
     Indication: ANXIETY
     Dosage: 15MG 1 TA DAY EVERY DAY BY MOUTH
     Route: 048
     Dates: start: 20120106, end: 20130523
  2. ABILIFY [Suspect]
     Indication: DEPRESSION
     Dosage: 15MG 1 TA DAY EVERY DAY BY MOUTH
     Route: 048
     Dates: start: 20120106, end: 20130523
  3. LORSATON [Concomitant]
  4. TRIAMT [Concomitant]
  5. POTASSIUM [Concomitant]
  6. CELEXA [Concomitant]
  7. MELOXICAM [Concomitant]
  8. PAIN PILL [Concomitant]
  9. MULTIVITAMIN [Concomitant]
  10. TUMS [Concomitant]

REACTIONS (3)
  - Tremor [None]
  - Victim of crime [None]
  - Face injury [None]
